FAERS Safety Report 6685191-4 (Version None)
Quarter: 2010Q2

REPORT INFORMATION
  Report Type: 
  Country: None (occurrence: None)
  Receive Date: 20100416
  Receipt Date: 20100405
  Transmission Date: 20101027
  Serious: Yes (Other)
  Sender: FDA-Public Use
  Company Number: JP-ROCHE-697486

PATIENT
  Sex: Male
  Weight: 70 kg

DRUGS (7)
  1. TOCILIZUMAB [Suspect]
     Indication: RHEUMATOID ARTHRITIS
     Route: 041
     Dates: start: 20080609, end: 20080609
  2. PREDONINE [Concomitant]
     Route: 048
  3. PREDNISOLONE [Concomitant]
     Dosage: DOSE FORM: PERORAL AGENT.
     Route: 048
  4. DEXAMETHASONE PALMITATE [Concomitant]
     Route: 042
  5. LOXONIN [Concomitant]
     Route: 048
  6. CYTOTEC [Concomitant]
     Route: 048
  7. LOXONIN [Concomitant]
     Dosage: DOSE FORM: TAPE, NOTE: DOSAGE ADJUSTED.
     Route: 061
     Dates: start: 20080414

REACTIONS (1)
  - RHEUMATOID ARTHRITIS [None]
